FAERS Safety Report 7077064-2 (Version None)
Quarter: 2010Q4

REPORT INFORMATION
  Report Type: 
  Country: None (occurrence: None)
  Receive Date: 20101101
  Receipt Date: 20101026
  Transmission Date: 20110411
  Serious: Yes (Disabling)
  Sender: FDA-Public Use
  Company Number: US-ROCHE-732657

PATIENT
  Sex: Female
  Weight: 98 kg

DRUGS (4)
  1. BONIVA [Suspect]
     Indication: OSTEOPOROSIS
     Route: 048
     Dates: start: 20071101
  2. GLIMEPIRIDE [Concomitant]
     Indication: DIABETES MELLITUS
     Dosage: EVERY DAY
     Route: 048
     Dates: start: 20080421
  3. FLUOXETINE [Concomitant]
     Indication: DEPRESSION
     Dosage: EVERYDAY
     Route: 048
     Dates: start: 20100107
  4. LISINOPRIL [Concomitant]
     Indication: HYPERTENSION
     Dosage: EVERYDAY
     Route: 048
     Dates: start: 20040101

REACTIONS (4)
  - ANKLE FRACTURE [None]
  - FALL [None]
  - HUMERUS FRACTURE [None]
  - RIB FRACTURE [None]
